FAERS Safety Report 20947426 (Version 2)
Quarter: 2022Q2

REPORT INFORMATION
  Report Type: Spontaneous
  Country: JP (occurrence: JP)
  Receive Date: 20220610
  Receipt Date: 20220629
  Transmission Date: 20220721
  Serious: Yes (Death, Other)
  Sender: FDA-Public Use
  Company Number: JP-TAKEDA-2022TJP056587

PATIENT
  Age: 7 Decade
  Sex: Female

DRUGS (1)
  1. ADCETRIS [Suspect]
     Active Substance: BRENTUXIMAB VEDOTIN
     Indication: Angioimmunoblastic T-cell lymphoma recurrent
     Dosage: 1.8 MILLIGRAM, Q3WEEKS
     Route: 041
     Dates: start: 202201

REACTIONS (1)
  - Angioimmunoblastic T-cell lymphoma recurrent [Fatal]

NARRATIVE: CASE EVENT DATE: 20220501
